FAERS Safety Report 7901774-5 (Version None)
Quarter: 2011Q4

REPORT INFORMATION
  Report Type: 
  Country: None (occurrence: None)
  Receive Date: 20111108
  Receipt Date: 20111025
  Transmission Date: 20120403
  Serious: Yes (Hospitalization)
  Sender: FDA-Public Use
  Company Number: PHHY2011IL95156

PATIENT

DRUGS (2)
  1. SANDOSTATIN LAR [Suspect]
     Indication: ACROMEGALY
     Dosage: 20 MG EVERY 14 DAYS
     Dates: start: 20091026
  2. DRUG THERAPY NOS [Concomitant]

REACTIONS (2)
  - DERMATITIS [None]
  - DIABETES MELLITUS [None]
